FAERS Safety Report 21908028 (Version 3)
Quarter: 2023Q1

REPORT INFORMATION
  Report Type: Spontaneous
  Country: US (occurrence: US)
  Receive Date: 20230125
  Receipt Date: 20230221
  Transmission Date: 20230418
  Serious: No
  Sender: FDA-Public Use
  Company Number: US-PFIZER INC-202300026087

PATIENT
  Age: 70 Year
  Sex: Female
  Weight: 52.16 kg

DRUGS (2)
  1. GENOTROPIN [Suspect]
     Active Substance: SOMATROPIN
     Indication: Growth hormone deficiency
     Dosage: 0.2 MG, DAILY (EVERY MORNING)
     Dates: start: 201002
  2. GENOTROPIN [Suspect]
     Active Substance: SOMATROPIN
     Indication: Addison^s disease

REACTIONS (8)
  - Fatigue [Unknown]
  - Malaise [Unknown]
  - Expired device used [Unknown]
  - Device power source issue [Unknown]
  - Device failure [Unknown]
  - Device mechanical issue [Unknown]
  - Device information output issue [Unknown]
  - Drug dose omission by device [Unknown]
